FAERS Safety Report 7460191-5 (Version None)
Quarter: 2011Q2

REPORT INFORMATION
  Report Type: 
  Country: None (occurrence: None)
  Receive Date: 20110505
  Receipt Date: 20110502
  Transmission Date: 20111010
  Serious: Yes (Other)
  Sender: FDA-Public Use
  Company Number: US-PFIZER INC-2011023149

PATIENT
  Sex: Male

DRUGS (3)
  1. CHANTIX [Suspect]
     Indication: SMOKING CESSATION THERAPY
     Dosage: UNK
     Dates: start: 20081226, end: 20090105
  2. OXYCODONE [Concomitant]
     Indication: BACK PAIN
     Dosage: UNK
     Dates: start: 20080601, end: 20110101
  3. LORAZEPAM [Concomitant]
     Indication: INSOMNIA
     Dosage: UNK
     Dates: start: 20080601, end: 20110201

REACTIONS (6)
  - DEPRESSION [None]
  - INSOMNIA [None]
  - SUICIDAL IDEATION [None]
  - ANXIETY [None]
  - LOSS OF CONSCIOUSNESS [None]
  - ABNORMAL DREAMS [None]
